FAERS Safety Report 5546354-4 (Version None)
Quarter: 2007Q4

REPORT INFORMATION
  Report Type: 
  Country: None (occurrence: None)
  Receive Date: 20071211
  Receipt Date: 20071130
  Transmission Date: 20080405
  Serious: Yes (Other)
  Sender: FDA-Public Use
  Company Number: HQWYE445414JUN04

PATIENT
  Sex: Female

DRUGS (3)
  1. PREMARIN [Suspect]
  2. MEDROXYPROGESTERONE [Suspect]
  3. MEDROXYPROGESTERONE ACETATE [Suspect]

REACTIONS (1)
  - BREAST CANCER METASTATIC [None]
